FAERS Safety Report 10049518 (Version 2)
Quarter: 2014Q2

REPORT INFORMATION
  Report Type: Spontaneous
  Country: FI (occurrence: FI)
  Receive Date: 20140401
  Receipt Date: 20140423
  Transmission Date: 20141212
  Serious: Yes (Hospitalization)
  Sender: FDA-Public Use
  Company Number: FI-ELI_LILLY_AND_COMPANY-FI201403008551

PATIENT
  Age: 27 Year
  Sex: Male
  Weight: 72 kg

DRUGS (2)
  1. STRATTERA [Suspect]
     Indication: ATTENTION DEFICIT/HYPERACTIVITY DISORDER
     Dosage: 40 MG, UNKNOWN
     Route: 065
     Dates: start: 20140211, end: 20140218
  2. STRATTERA [Suspect]
     Dosage: 80 MG, UNKNOWN
     Route: 065
     Dates: start: 20140219

REACTIONS (5)
  - Dyspnoea [Recovered/Resolved]
  - Rash [Recovering/Resolving]
  - Hypersensitivity [Recovering/Resolving]
  - Nausea [Recovered/Resolved]
  - Vomiting [Recovered/Resolved]
